FAERS Safety Report 9184889 (Version 1)
Quarter: 2013Q1

REPORT INFORMATION
  Report Type: Spontaneous
  Country: US (occurrence: US)
  Receive Date: 20130325
  Receipt Date: 20130325
  Transmission Date: 20140127
  Serious: No
  Sender: FDA-Public Use
  Company Number: US-BRISTOL-MYERS SQUIBB COMPANY-16515454

PATIENT
  Age: 83 Year
  Sex: Male

DRUGS (4)
  1. ERBITUX [Suspect]
     Indication: COLON CANCER
  2. DECADRON [Concomitant]
  3. BENADRYL [Concomitant]
  4. CAMPTOSAR [Concomitant]

REACTIONS (2)
  - Erythema [Recovering/Resolving]
  - Skin fissures [Recovering/Resolving]
